FAERS Safety Report 19676358 (Version 1)
Quarter: 2021Q3

REPORT INFORMATION
  Report Type: Spontaneous
  Country: ES (occurrence: ES)
  Receive Date: 20210809
  Receipt Date: 20210809
  Transmission Date: 20211014
  Serious: Yes (Other)
  Sender: FDA-Public Use
  Company Number: NVSC2021ES177477

PATIENT
  Age: 40 Year
  Sex: Male

DRUGS (7)
  1. BEXAROTENE. [Suspect]
     Active Substance: BEXAROTENE
     Indication: CUTANEOUS T-CELL LYMPHOMA STAGE II
     Dosage: UNK
     Route: 065
  2. 8?METHOXYPSORALENUM [Suspect]
     Active Substance: METHOXSALEN
     Indication: CUTANEOUS T-CELL LYMPHOMA STAGE II
     Dosage: UNK
     Route: 065
  3. METHOTREXATE. [Suspect]
     Active Substance: METHOTREXATE
     Indication: CUTANEOUS T-CELL LYMPHOMA STAGE II
     Dosage: 30 MG, QW
     Route: 058
  4. METHOTREXATE. [Suspect]
     Active Substance: METHOTREXATE
     Dosage: 50 MG, QW
     Route: 058
  5. ROMIDEPSIN. [Suspect]
     Active Substance: ROMIDEPSIN
     Indication: CUTANEOUS T-CELL LYMPHOMA STAGE II
     Dosage: 14 MG/M2, CYCLIC
     Route: 042
  6. PENTOSTATIN. [Suspect]
     Active Substance: PENTOSTATIN
     Indication: CUTANEOUS T-CELL LYMPHOMA STAGE II
     Dosage: UNK
     Route: 065
  7. INTERFERON ALFA NOS [Suspect]
     Active Substance: INTERFERON ALFA-2A OR INTERFERON ALFA-2B
     Indication: CUTANEOUS T-CELL LYMPHOMA STAGE II
     Dosage: UNK
     Route: 065

REACTIONS (8)
  - Cutaneous T-cell lymphoma stage II [Unknown]
  - Nausea [Unknown]
  - Dysgeusia [Unknown]
  - Anaemia [Unknown]
  - Electrocardiogram QT prolonged [Unknown]
  - Malignant neoplasm progression [Unknown]
  - Salivary hypersecretion [Unknown]
  - Drug ineffective [Unknown]
